FAERS Safety Report 4790308-2 (Version None)
Quarter: 2005Q4

REPORT INFORMATION
  Report Type: 
  Country: None (occurrence: None)
  Receive Date: 20051005
  Receipt Date: 20050923
  Transmission Date: 20060501
  Serious: Yes (Hospitalization)
  Sender: FDA-Public Use
  Company Number: 218046

PATIENT
  Age: 60 Year
  Sex: Male
  Weight: 94 kg

DRUGS (3)
  1. AVASTIN [Suspect]
     Indication: PANCREATIC CARCINOMA
     Dosage: 15 MG/KG, Q3W, INTRAVENOUS
     Route: 042
     Dates: start: 20050126, end: 20050830
  2. CAPECITABINE (CAPECITABINE) [Suspect]
     Indication: PANCREATIC CARCINOMA
     Dosage: 650 MG, BID, ORAL
     Route: 048
     Dates: start: 20050126, end: 20050907
  3. GEMCITABINE (GEMCITABINE HYDROCHLORIDE) [Suspect]
     Indication: PANCREATIC CARCINOMA
     Dosage: 1000 MG/M2, Q2W, INTRAVENOUS
     Route: 042
     Dates: start: 20050126, end: 20050907

REACTIONS (5)
  - ABDOMINAL PAIN [None]
  - MOUTH HAEMORRHAGE [None]
  - MOUTH ULCERATION [None]
  - THROMBOCYTOPENIA [None]
  - VOMITING [None]
